FAERS Safety Report 10055750 (Version 1)
Quarter: 2014Q2

REPORT INFORMATION
  Report Type: Spontaneous
  Country: US (occurrence: None)
  Receive Date: 20140402
  Receipt Date: 20140402
  Transmission Date: 20141212
  Serious: No
  Sender: FDA-Public Use
  Company Number: None

PATIENT
  Age: 52 Year
  Sex: Male

DRUGS (2)
  1. VERSED [Suspect]
  2. MORPHINE [Suspect]

REACTIONS (2)
  - Pruritus [None]
  - Infusion site erythema [None]
